FAERS Safety Report 9653902 (Version 1)
Quarter: 2013Q4

REPORT INFORMATION
  Report Type: Spontaneous
  Country: US (occurrence: US)
  Receive Date: 20131029
  Receipt Date: 20131029
  Transmission Date: 20140711
  Serious: No
  Sender: FDA-Public Use
  Company Number: US-BIOGENIDEC-2013BI081716

PATIENT
  Age: 27 Year
  Sex: Female

DRUGS (2)
  1. TECFIDERA [Suspect]
     Indication: MULTIPLE SCLEROSIS
     Route: 048
     Dates: start: 20130805
  2. TECFIDERA [Suspect]
     Indication: MULTIPLE SCLEROSIS
     Route: 048

REACTIONS (7)
  - Chest pain [Unknown]
  - Heart rate increased [Unknown]
  - Chest discomfort [Unknown]
  - Arthralgia [Unknown]
  - Joint swelling [Unknown]
  - Nausea [Unknown]
  - Prescribed underdose [Not Recovered/Not Resolved]
